FAERS Safety Report 7159043-X (Version None)
Quarter: 2010Q4

REPORT INFORMATION
  Report Type: 
  Country: None (occurrence: None)
  Receive Date: 20101130
  Receipt Date: 20101126
  Transmission Date: 20110411
  Serious: Yes (Death)
  Sender: FDA-Public Use
  Company Number: 2010SP062020

PATIENT
  Sex: Female

DRUGS (1)
  1. TEMODAL [Suspect]
     Indication: MALIGNANT MELANOMA
     Dosage: IV
     Route: 042
     Dates: start: 20101025

REACTIONS (1)
  - WRONG TECHNIQUE IN DRUG USAGE PROCESS [None]
